FAERS Safety Report 5429744-X (Version None)
Quarter: 2007Q3

REPORT INFORMATION
  Report Type: 
  Country: None (occurrence: None)
  Receive Date: 20070731
  Receipt Date: 20070412
  Transmission Date: 20080115
  Serious: No
  Sender: FDA-Public Use
  Company Number: US200704003044

PATIENT
  Age: 66 Year
  Sex: Female

DRUGS (23)
  1. BYETTA [Suspect]
     Indication: TYPE 2 DIABETES MELLITUS
     Dosage: 5 UG, 2/D, SUBCUTANEOUS 5 UG, DAILY (1/D), SUBCUTANEOUS 5 UG, DAILY (1/D), SUBCUTANEOUS
     Route: 058
     Dates: start: 20070401, end: 20070401
  2. BYETTA [Suspect]
     Indication: TYPE 2 DIABETES MELLITUS
     Dosage: 5 UG, 2/D, SUBCUTANEOUS 5 UG, DAILY (1/D), SUBCUTANEOUS 5 UG, DAILY (1/D), SUBCUTANEOUS
     Route: 058
     Dates: start: 20070403, end: 20070401
  3. BYETTA [Suspect]
     Indication: TYPE 2 DIABETES MELLITUS
     Dosage: 5 UG, 2/D, SUBCUTANEOUS 5 UG, DAILY (1/D), SUBCUTANEOUS 5 UG, DAILY (1/D), SUBCUTANEOUS
     Route: 058
     Dates: start: 20070401
  4. GABAPENTIN [Concomitant]
  5. ZETIA [Concomitant]
  6. LASIX [Concomitant]
  7. IMDUR [Concomitant]
  8. K-DUR 10 [Concomitant]
  9. LANOXIN [Concomitant]
  10. COREG [Concomitant]
  11. PLAVIX [Concomitant]
  12. NEXIUM [Concomitant]
  13. ACTOS [Concomitant]
  14. AMIODARONE HCL [Concomitant]
  15. DARVOCET [Concomitant]
  16. ALEVE (NAPROXEN SODIUM, PSEUDOEPHEDRINE HYDROCHLORIDE) [Concomitant]
  17. IBUPROFEN [Concomitant]
  18. ASPIRIN [Concomitant]
  19. PHENAZOPYRIDINE HCL TAB [Concomitant]
  20. TRANXENE [Concomitant]
  21. HUMULIN U [Concomitant]
  22. HUMULIN R [Concomitant]
  23. LANTUS [Concomitant]

REACTIONS (3)
  - HEART RATE IRREGULAR [None]
  - NAUSEA [None]
  - PALPITATIONS [None]
